FAERS Safety Report 9850687 (Version 2)
Quarter: 2014Q1

REPORT INFORMATION
  Report Type: Spontaneous
  Country: US (occurrence: US)
  Receive Date: 20140128
  Receipt Date: 20140224
  Transmission Date: 20141002
  Serious: Yes (Other)
  Sender: FDA-Public Use
  Company Number: CHPA2014US001127

PATIENT
  Age: 46 Year
  Sex: Female

DRUGS (2)
  1. VOLTAREN GEL [Suspect]
     Indication: ARTHRALGIA
     Dosage: UNK
     Route: 061
     Dates: end: 2013
  2. VOLTAREN GEL [Suspect]
     Indication: OFF LABEL USE

REACTIONS (2)
  - Post procedural complication [Not Recovered/Not Resolved]
  - Pain [Unknown]
